FAERS Safety Report 7535770-7 (Version None)
Quarter: 2011Q2

REPORT INFORMATION
  Report Type: 
  Country: None (occurrence: None)
  Receive Date: 20110609
  Receipt Date: 20110317
  Transmission Date: 20111010
  Serious: No
  Sender: FDA-Public Use
  Company Number: US-KINGPHARMUSA00001-K201100297

PATIENT
  Age: 67 Year
  Sex: Male

DRUGS (2)
  1. ANTIHYPERTENSIVES [Concomitant]
     Indication: HYPERTENSION
  2. EMBEDA [Suspect]
     Indication: PAIN
     Dosage: 90 MG, BID
     Route: 048

REACTIONS (1)
  - MALAISE [None]
